FAERS Safety Report 9132383 (Version 1)
Quarter: 2013Q1

REPORT INFORMATION
  Report Type: Spontaneous
  Country: HU (occurrence: HU)
  Receive Date: 20130301
  Receipt Date: 20130301
  Transmission Date: 20140127
  Serious: Yes (Hospitalization)
  Sender: FDA-Public Use
  Company Number: HU-TEVA-387072ISR

PATIENT
  Age: 79 Year
  Sex: Female

DRUGS (3)
  1. CARVEDILOL [Suspect]
     Dosage: 25 MILLIGRAM DAILY;
     Route: 048
  2. IRBESARTAN [Concomitant]
     Dosage: 300 MILLIGRAM DAILY;
     Route: 048
  3. AMLODIPIN [Concomitant]
     Dosage: 5 MILLIGRAM DAILY;
     Route: 048

REACTIONS (3)
  - Stress cardiomyopathy [Recovered/Resolved]
  - Dermatitis allergic [Recovered/Resolved]
  - Drug withdrawal syndrome [Unknown]
